FAERS Safety Report 26186643 (Version 1)
Quarter: 2025Q4

REPORT INFORMATION
  Report Type: Spontaneous
  Country: US (occurrence: None)
  Receive Date: 20251220
  Receipt Date: 20251220
  Transmission Date: 20260118
  Serious: Yes (Hospitalization)
  Sender: FDA-CTU
  Company Number: None

PATIENT
  Sex: Male

DRUGS (6)
  1. TADALAFIL [Suspect]
     Active Substance: TADALAFIL
     Indication: Pulmonary arterial hypertension
     Dosage: TAKE 1 TABLET BY MOUTH EVERY DAY
     Route: 048
  2. AMBRISENTAN [Concomitant]
     Active Substance: AMBRISENTAN
  3. COLACE [Concomitant]
     Active Substance: DOCUSATE SODIUM
  4. MIDODRINE [Concomitant]
     Active Substance: MIDODRINE
  5. REMODULIN [Concomitant]
     Active Substance: TREPROSTINIL
  6. V1TAMIN D3 [Concomitant]

REACTIONS (1)
  - Lung operation [None]
